FAERS Safety Report 6444531-1 (Version None)
Quarter: 2009Q4

REPORT INFORMATION
  Report Type: 
  Country: None (occurrence: None)
  Receive Date: 20091118
  Receipt Date: 20091109
  Transmission Date: 20100525
  Serious: Yes (Hospitalization)
  Sender: FDA-Public Use
  Company Number: GB-NOVOPROD-292759

PATIENT
  Sex: Male
  Weight: 81.2 kg

DRUGS (7)
  1. NOVOMIX 30 [Suspect]
     Indication: TYPE 1 DIABETES MELLITUS
     Dosage: 82 IU, QD
     Route: 058
  2. NOVOMIX 30 [Suspect]
     Dosage: 92 IU, QD (62+30)
     Route: 058
  3. VITAMINS                           /00067501/ [Concomitant]
  4. LANSOPRAZOLE [Concomitant]
  5. SIMVASTATIN [Concomitant]
  6. THYMINE [Concomitant]
  7. ACTRAPID [Concomitant]
     Indication: TYPE 1 DIABETES MELLITUS
     Dosage: PRN

REACTIONS (5)
  - BLOOD GLUCOSE DECREASED [None]
  - BLOOD GLUCOSE INCREASED [None]
  - BLOOD KETONE BODY [None]
  - DIABETIC KETOACIDOSIS [None]
  - URINARY TRACT INFECTION [None]
